FAERS Safety Report 5889718-1 (Version None)
Quarter: 2008Q3

REPORT INFORMATION
  Report Type: 
  Country: None (occurrence: None)
  Receive Date: 20080919
  Receipt Date: 20080910
  Transmission Date: 20090109
  Serious: Yes (Hospitalization)
  Sender: FDA-Public Use
  Company Number: US-JNJFOC-20080902907

PATIENT
  Age: 23 Year
  Sex: Male
  Weight: 92.08 kg

DRUGS (1)
  1. MS TYLENOL SINUS DAY NON-DROWSY CAPLETS [Suspect]
     Indication: SEASONAL ALLERGY
     Route: 048

REACTIONS (5)
  - DISORIENTATION [None]
  - DYSPNOEA [None]
  - EXPIRED DRUG ADMINISTERED [None]
  - HEART RATE INCREASED [None]
  - HYPOTENSION [None]
